FAERS Safety Report 9303374 (Version 1)
Quarter: 2013Q2

REPORT INFORMATION
  Report Type: Spontaneous
  Country: US (occurrence: None)
  Receive Date: 20130521
  Receipt Date: 20130521
  Transmission Date: 20140414
  Serious: Yes (Other)
  Sender: FDA-Public Use
  Company Number: None

PATIENT
  Age: 62 Year
  Sex: Female
  Weight: 90.72 kg

DRUGS (2)
  1. ADVAIR DISKUS [Suspect]
     Indication: BRONCHOSPASM
     Dosage: 1 INHALATION, 2X DAY, MOUTH
     Route: 048
     Dates: start: 20130503
  2. ADVAIR DISKUS [Suspect]
     Indication: COUGH
     Dosage: 1 INHALATION, 2X DAY, MOUTH
     Route: 048
     Dates: start: 20130503

REACTIONS (4)
  - Cough [None]
  - Dyspnoea [None]
  - Retching [None]
  - Throat irritation [None]
